FAERS Safety Report 6663158-X (Version None)
Quarter: 2010Q2

REPORT INFORMATION
  Report Type: 
  Country: None (occurrence: None)
  Receive Date: 20100401
  Receipt Date: 20100322
  Transmission Date: 20101027
  Serious: Yes (Hospitalization)
  Sender: FDA-Public Use
  Company Number: SE-JNJFOC-20100306889

PATIENT
  Age: 51 Year
  Sex: Female

DRUGS (3)
  1. REMICADE [Suspect]
     Indication: JUVENILE ARTHRITIS
     Route: 042
     Dates: start: 20070927
  2. PREDNISOLON [Concomitant]
     Dates: start: 20090511
  3. KETOGAN [Concomitant]
     Route: 054

REACTIONS (1)
  - GASTROENTERITIS [None]
